FAERS Safety Report 12540998 (Version 2)
Quarter: 2016Q3

REPORT INFORMATION
  Report Type: Spontaneous
  Country: RU (occurrence: RU)
  Receive Date: 20160708
  Receipt Date: 20160819
  Transmission Date: 20161109
  Serious: Yes (Hospitalization)
  Sender: FDA-Public Use
  Company Number: RU-BAYER-2016-129866

PATIENT
  Age: 59 Year
  Sex: Female

DRUGS (6)
  1. NEXAVAR [Suspect]
     Active Substance: SORAFENIB
     Indication: HEPATOCELLULAR CARCINOMA
     Dosage: 400 MG, BID
  2. INDAPAMIDE W/PERINDOPRIL [Concomitant]
     Active Substance: INDAPAMIDE\PERINDOPRIL
     Indication: HYPERTENSION
  3. VIKASOL [Concomitant]
  4. SIOFOR [Concomitant]
     Active Substance: METFORMIN HYDROCHLORIDE
     Indication: TYPE 2 DIABETES MELLITUS
     Dosage: 500 MG
  5. DUPHALAC [Concomitant]
     Active Substance: LACTULOSE
  6. DIABETON [GLICLAZIDE] [Concomitant]
     Indication: TYPE 2 DIABETES MELLITUS
     Dosage: 60 MG

REACTIONS (2)
  - Hepatocellular carcinoma [None]
  - Alpha 1 foetoprotein increased [None]
